FAERS Safety Report 21975237 (Version 1)
Quarter: 2023Q1

REPORT INFORMATION
  Report Type: Spontaneous
  Country: FR (occurrence: FR)
  Receive Date: 20230210
  Receipt Date: 20230210
  Transmission Date: 20230418
  Serious: Yes (Hospitalization, Other)
  Sender: FDA-Public Use
  Company Number: FR-IMMUNOCORE, LTD-2023-IMC-001389

PATIENT

DRUGS (3)
  1. TEBENTAFUSP [Suspect]
     Active Substance: TEBENTAFUSP
     Indication: Metastatic malignant melanoma
     Dosage: 20 MICROGRAM
     Route: 042
     Dates: start: 20220720, end: 20220720
  2. TEBENTAFUSP [Suspect]
     Active Substance: TEBENTAFUSP
     Dosage: 30 MICROGRAM
     Route: 042
     Dates: start: 20220727, end: 20220727
  3. TEBENTAFUSP [Suspect]
     Active Substance: TEBENTAFUSP
     Dosage: 68 MICROGRAM, SINGLE (WEEKLY)
     Route: 042
     Dates: start: 20220804

REACTIONS (1)
  - Lactic acidosis [Recovered/Resolved]

NARRATIVE: CASE EVENT DATE: 20221116
